FAERS Safety Report 14621651 (Version 1)
Quarter: 2018Q1

REPORT INFORMATION
  Report Type: Report from Study
  Country: DE (occurrence: DE)
  Receive Date: 20180310
  Receipt Date: 20180310
  Transmission Date: 20180509
  Serious: Yes (Death, Other)
  Sender: FDA-Public Use
  Company Number: DE-BRISTOL-MYERS SQUIBB COMPANY-BMS-2018-021042

PATIENT

DRUGS (3)
  1. CLOPIDOGREL HYDROGEN SULFATE [Suspect]
     Active Substance: CLOPIDOGREL BISULFATE
     Indication: PRODUCT USED FOR UNKNOWN INDICATION
     Dosage: UNK
     Route: 048
  2. APIXABAN [Suspect]
     Active Substance: APIXABAN
     Indication: EMBOLISM VENOUS
     Dosage: 5 MG, DAILY
     Route: 048
     Dates: start: 20170321
  3. APIXABAN [Suspect]
     Active Substance: APIXABAN
     Indication: PRODUCT USED FOR UNKNOWN INDICATION
     Dosage: 2.5 MG, DAILY
     Route: 065

REACTIONS (6)
  - Haemorrhage [Unknown]
  - Epistaxis [Unknown]
  - Spontaneous haematoma [Unknown]
  - Off label use [Unknown]
  - Chronic obstructive pulmonary disease [Fatal]
  - Ear haemorrhage [Unknown]

NARRATIVE: CASE EVENT DATE: 20170401
